FAERS Safety Report 6048891-5 (Version None)
Quarter: 2009Q1

REPORT INFORMATION
  Report Type: 
  Country: None (occurrence: None)
  Receive Date: 20090123
  Receipt Date: 20090121
  Transmission Date: 20090719
  Serious: Yes (Life-Threatening)
  Sender: FDA-Public Use
  Company Number: FR-WYE-G02981709

PATIENT
  Age: 37 Year
  Sex: Female

DRUGS (5)
  1. TAZOCILLINE [Suspect]
     Indication: PSEUDOMONAS INFECTION
     Route: 042
     Dates: start: 20081218, end: 20081220
  2. FUNGIZONE [Suspect]
     Indication: MUCOCUTANEOUS CANDIDIASIS
     Dosage: UNKNOWN
     Route: 048
     Dates: start: 20081219, end: 20081220
  3. PEVARYL [Suspect]
     Indication: MUCOCUTANEOUS CANDIDIASIS
     Dosage: SINGLE APPLICATION
     Route: 003
     Dates: start: 20081219, end: 20081219
  4. AXEPIM [Suspect]
     Indication: SEPSIS
     Route: 042
     Dates: start: 20081216, end: 20081218
  5. HIBITANE [Suspect]
     Indication: INFECTION PROPHYLAXIS
     Dosage: UNKNOWN
     Route: 003
     Dates: start: 20081219, end: 20081220

REACTIONS (3)
  - ACUTE RESPIRATORY DISTRESS SYNDROME [None]
  - ANAPHYLACTIC SHOCK [None]
  - FACE OEDEMA [None]
